FAERS Safety Report 17179729 (Version 4)
Quarter: 2020Q1

REPORT INFORMATION
  Report Type: Spontaneous
  Country: DE (occurrence: DE)
  Receive Date: 20191219
  Receipt Date: 20200307
  Transmission Date: 20200409
  Serious: Yes (Death)
  Sender: FDA-Public Use
  Company Number: DE-ROCHE-2399056

PATIENT
  Sex: Male

DRUGS (10)
  1. METHOTREXATE. [Suspect]
     Active Substance: METHOTREXATE
     Indication: DIFFUSE LARGE B-CELL LYMPHOMA
     Dosage: 1ST LINE, R-CHOEP 8 CYCLES
     Route: 065
     Dates: start: 20180815
  2. THALIDOMIDE [Suspect]
     Active Substance: THALIDOMIDE
     Indication: DIFFUSE LARGE B-CELL LYMPHOMA
     Dosage: 1ST LINE, R-CHOEP 8 CYCLES
     Route: 065
     Dates: start: 20180815
  3. RITUXAN [Suspect]
     Active Substance: RITUXIMAB
     Dosage: 2ND LINE, R-DHAOX 2 CYCLES
     Route: 065
     Dates: start: 20190323
  4. AZATHIOPRINE. [Suspect]
     Active Substance: AZATHIOPRINE
     Indication: DIFFUSE LARGE B-CELL LYMPHOMA
     Dosage: 1ST LINE, R-CHOEP 8 CYCLES
     Route: 065
     Dates: start: 20180815
  5. RITUXAN [Suspect]
     Active Substance: RITUXIMAB
     Dosage: FURTHER LINE, GMALL, B-ALL
     Route: 065
     Dates: start: 20190507
  6. RITUXAN [Suspect]
     Active Substance: RITUXIMAB
     Dosage: FURTHER LINE, R-BENDAMSUTIN-MITOXANTRONE
     Route: 065
     Dates: start: 20190607
  7. CYCLOPHOSPHAMIDE. [Suspect]
     Active Substance: CYCLOPHOSPHAMIDE
     Indication: DIFFUSE LARGE B-CELL LYMPHOMA
     Dosage: 1ST LINE, R-CHOEP 8 CYCLES
     Route: 065
     Dates: start: 20180815
  8. BENDAMUSTINE [Suspect]
     Active Substance: BENDAMUSTINE
     Indication: DIFFUSE LARGE B-CELL LYMPHOMA
     Dosage: 1ST LINE, R-CHOEP 8 CYCLES
     Route: 065
     Dates: start: 20180815
  9. RITUXAN [Suspect]
     Active Substance: RITUXIMAB
     Indication: DIFFUSE LARGE B-CELL LYMPHOMA
     Dosage: 1ST LINE, R-CHOEP 8 CYCLES
     Route: 065
     Dates: start: 20180815
  10. DEXAMETHASONE. [Suspect]
     Active Substance: DEXAMETHASONE
     Indication: DIFFUSE LARGE B-CELL LYMPHOMA
     Dosage: 1ST LINE, R-CHOEP 8 CYCLES
     Route: 065
     Dates: start: 20180815

REACTIONS (6)
  - Aspartate aminotransferase increased [Unknown]
  - Blood creatinine increased [Unknown]
  - Platelet count decreased [Unknown]
  - Death [Fatal]
  - Neutrophil count decreased [Unknown]
  - Blood bilirubin decreased [Unknown]
